FAERS Safety Report 9214566 (Version 1)
Quarter: 2013Q2

REPORT INFORMATION
  Report Type: Spontaneous
  Country: US (occurrence: US)
  Receive Date: 20130405
  Receipt Date: 20130405
  Transmission Date: 20140414
  Serious: No
  Sender: FDA-Public Use
  Company Number: US-BAYER-2013-035780

PATIENT
  Age: 75 Year
  Sex: Female

DRUGS (1)
  1. STIVARGA [Suspect]
     Indication: RECTAL CANCER METASTATIC
     Dosage: 160 MG DAILY
     Route: 048
     Dates: start: 201302, end: 201302

REACTIONS (1)
  - Liver function test abnormal [Recovered/Resolved]
